FAERS Safety Report 24997633 (Version 1)
Quarter: 2025Q1

REPORT INFORMATION
  Report Type: Spontaneous
  Country: LK (occurrence: LK)
  Receive Date: 20250222
  Receipt Date: 20250222
  Transmission Date: 20250409
  Serious: Yes (Death, Other)
  Sender: NOVITIUM PHARMA
  Company Number: LK-NOVITIUMPHARMA-2025LKNVP00409

PATIENT
  Age: 24 Year
  Sex: Male

DRUGS (3)
  1. TRIHEXYPHENIDYL [Suspect]
     Active Substance: TRIHEXYPHENIDYL
     Indication: Product used for unknown indication
  2. OLANZAPINE [Concomitant]
     Active Substance: OLANZAPINE
     Indication: Product used for unknown indication
  3. HALOPERIDOL [Concomitant]
     Active Substance: HALOPERIDOL
     Indication: Product used for unknown indication

REACTIONS (5)
  - Pulmonary haemorrhage [Fatal]
  - Pulmonary oedema [Fatal]
  - Renal tubular necrosis [Fatal]
  - Nephropathy toxic [Fatal]
  - Overdose [Fatal]
